FAERS Safety Report 16687717 (Version 2)
Quarter: 2019Q4

REPORT INFORMATION
  Report Type: Report from Study
  Country: US (occurrence: US)
  Receive Date: 20190809
  Receipt Date: 20191104
  Transmission Date: 20200122
  Serious: Yes (Other)
  Sender: FDA-Public Use
  Company Number: US-ROCHE-2373747

PATIENT

DRUGS (2)
  1. NIVOLUMAB [Suspect]
     Active Substance: NIVOLUMAB
     Indication: OVARIAN CANCER RECURRENT
     Route: 042
  2. BEVACIZUMAB. [Suspect]
     Active Substance: BEVACIZUMAB
     Indication: OVARIAN CANCER RECURRENT
     Route: 042

REACTIONS (8)
  - Hypertension [Unknown]
  - Amylase increased [Unknown]
  - Lipase increased [Unknown]
  - Arthralgia [Unknown]
  - Aspartate aminotransferase increased [Unknown]
  - Skin disorder [Unknown]
  - Myalgia [Unknown]
  - Alanine aminotransferase increased [Unknown]
